FAERS Safety Report 16133994 (Version 1)
Quarter: 2019Q1

REPORT INFORMATION
  Report Type: Spontaneous
  Country: CA (occurrence: CA)
  Receive Date: 20190329
  Receipt Date: 20190329
  Transmission Date: 20190418
  Serious: Yes (Other)
  Sender: FDA-Public Use
  Company Number: CA-ELI_LILLY_AND_COMPANY-CA201903013920

PATIENT
  Age: 39 Year
  Sex: Male
  Weight: 63.49 kg

DRUGS (1)
  1. ZYPREXA [Suspect]
     Active Substance: OLANZAPINE
     Indication: PRODUCT USED FOR UNKNOWN INDICATION
     Dosage: 20 MG, DAILY
     Route: 048

REACTIONS (7)
  - Diabetes mellitus [Recovering/Resolving]
  - Hangover [Recovering/Resolving]
  - Wrong drug [Unknown]
  - Liver disorder [Recovering/Resolving]
  - Tachycardia [Recovering/Resolving]
  - Rash [Recovering/Resolving]
  - Weight increased [Recovering/Resolving]
